FAERS Safety Report 6792681-2 (Version None)
Quarter: 2010Q2

REPORT INFORMATION
  Report Type: 
  Country: None (occurrence: None)
  Receive Date: 20100624
  Receipt Date: 20080909
  Transmission Date: 20101027
  Serious: No
  Sender: FDA-Public Use
  Company Number: US-PFIZER INC-2008076048

PATIENT
  Sex: Male
  Weight: 90.5 kg

DRUGS (3)
  1. GEODON [Suspect]
     Indication: BIPOLAR DISORDER
     Route: 048
     Dates: start: 20080701
  2. LAMICTAL [Concomitant]
  3. SYNTHROID [Concomitant]

REACTIONS (2)
  - SEDATION [None]
  - WRONG TECHNIQUE IN DRUG USAGE PROCESS [None]
